FAERS Safety Report 15136702 (Version 1)
Quarter: 2018Q3

REPORT INFORMATION
  Report Type: Spontaneous
  Country: FR (occurrence: FR)
  Receive Date: 20180712
  Receipt Date: 20180712
  Transmission Date: 20181010
  Serious: Yes (Other)
  Sender: FDA-Public Use
  Company Number: FR-US WORLDMEDS, LLC-STA_00016372

PATIENT
  Age: 74 Year
  Sex: Female

DRUGS (1)
  1. APOMORPHINE HYDROCHLORIDE [Suspect]
     Active Substance: APOMORPHINE HYDROCHLORIDE
     Indication: ON AND OFF PHENOMENON
     Dosage: 7.3MG/H 7AM TO 7PM AT A DILUTION OF 7.5MG/ML 30 PERCENT; 6.2 MG/H AT NIGHT (7.5MG/ML 30 PERCENT)
     Route: 058

REACTIONS (2)
  - Injection site nodule [Unknown]
  - Eosinophilia [Recovered/Resolved]
